FAERS Safety Report 5836681-5 (Version None)
Quarter: 2008Q3

REPORT INFORMATION
  Report Type: 
  Country: None (occurrence: None)
  Receive Date: 20080807
  Receipt Date: 20080731
  Transmission Date: 20090109
  Serious: Yes (Death, Other)
  Sender: FDA-Public Use
  Company Number: US-ROCHE-569284

PATIENT
  Sex: Female

DRUGS (1)
  1. MYCOPHENOLATE MOFETIL [Suspect]
     Route: 065
     Dates: start: 20080101

REACTIONS (5)
  - INTESTINAL INFARCTION [None]
  - LARGE INTESTINE PERFORATION [None]
  - RESPIRATORY FAILURE [None]
  - ULCERATIVE KERATITIS [None]
  - VASCULITIS [None]
